FAERS Safety Report 9284779 (Version 3)
Quarter: 2013Q3

REPORT INFORMATION
  Report Type: Spontaneous
  Country: BR (occurrence: BR)
  Receive Date: 20130513
  Receipt Date: 20130702
  Transmission Date: 20140515
  Serious: Yes (Other)
  Sender: FDA-Public Use
  Company Number: BR-ROCHE-1208237

PATIENT
  Sex: Male
  Weight: 60 kg

DRUGS (1)
  1. ROACUTAN [Suspect]
     Indication: ACNE
     Route: 048
     Dates: start: 20130222, end: 20130322

REACTIONS (6)
  - Depression [Not Recovered/Not Resolved]
  - Schizophrenia [Not Recovered/Not Resolved]
  - Headache [Not Recovered/Not Resolved]
  - Hallucination [Not Recovered/Not Resolved]
  - Crying [Not Recovered/Not Resolved]
  - Pain [Unknown]
